FAERS Safety Report 10297004 (Version 2)
Quarter: 2014Q3

REPORT INFORMATION
  Report Type: Spontaneous
  Country: US (occurrence: US)
  Receive Date: 20140711
  Receipt Date: 20140822
  Transmission Date: 20150326
  Serious: No
  Sender: FDA-Public Use
  Company Number: US-009507513-1406USA011093

PATIENT
  Sex: Female
  Weight: 104.76 kg

DRUGS (1)
  1. NEXPLANON [Suspect]
     Active Substance: ETONOGESTREL
     Indication: CONTRACEPTION
     Dosage: SINGLE ROD
     Route: 058
     Dates: start: 20140127, end: 20140619

REACTIONS (7)
  - Device kink [Recovered/Resolved]
  - Device breakage [Recovered/Resolved]
  - Vaginal haemorrhage [Recovered/Resolved]
  - Uterine haemorrhage [Recovered/Resolved]
  - Amenorrhoea [Unknown]
  - Female sex hormone level abnormal [Unknown]
  - Menorrhagia [Unknown]

NARRATIVE: CASE EVENT DATE: 2014
